FAERS Safety Report 23675056 (Version 1)
Quarter: 2024Q1

REPORT INFORMATION
  Report Type: Spontaneous
  Country: TW (occurrence: TW)
  Receive Date: 20240326
  Receipt Date: 20240326
  Transmission Date: 20240410
  Serious: Yes (Death, Other)
  Sender: FDA-Public Use
  Company Number: TW-009507513-2403TWN007765

PATIENT
  Age: 75 Year
  Sex: Female
  Weight: 51 kg

DRUGS (1)
  1. KEYTRUDA [Suspect]
     Active Substance: PEMBROLIZUMAB
     Dosage: ||Q3W

REACTIONS (2)
  - Pancytopenia [Fatal]
  - Septic shock [Fatal]
